FAERS Safety Report 7064531-0 (Version None)
Quarter: 2010Q4

REPORT INFORMATION
  Report Type: 
  Country: None (occurrence: None)
  Receive Date: 20101022
  Receipt Date: 20101022
  Transmission Date: 20110411
  Serious: Yes (Other)
  Sender: FDA-Public Use
  Company Number: None

PATIENT
  Age: 64 Year
  Sex: Female
  Weight: 81.6475 kg

DRUGS (2)
  1. TRIAMTERENE/HYDROCHLOROTHIAZIDE [Suspect]
     Indication: FLUID RETENTION
     Dosage: 1 CAPSULE 37.5 MG 1/DAY SAFEWAY PHARM
     Dates: start: 20100901
  2. TRIAMTERENE/HYDROCHLOROTHIAZIDE [Suspect]
     Indication: SWELLING
     Dosage: 1 CAPSULE 37.5 MG 1/DAY SAFEWAY PHARM
     Dates: start: 20100901

REACTIONS (5)
  - CONFUSIONAL STATE [None]
  - DIZZINESS [None]
  - DYSGEUSIA [None]
  - NAUSEA [None]
  - PRODUCT SUBSTITUTION ISSUE [None]
